FAERS Safety Report 16941950 (Version 1)
Quarter: 2019Q4

REPORT INFORMATION
  Report Type: Report from Study
  Country: JP (occurrence: JP)
  Receive Date: 20191021
  Receipt Date: 20191021
  Transmission Date: 20200122
  Serious: Yes (Other)
  Sender: FDA-Public Use
  Company Number: JP-PFIZER INC-2019449260

PATIENT
  Age: 85 Year
  Sex: Male

DRUGS (4)
  1. PROPOFOL. [Suspect]
     Active Substance: PROPOFOL
     Indication: SEDATION
     Dosage: 1.0 TO 2.0 MG/KG/HR
  2. FENTANYL. [Suspect]
     Active Substance: FENTANYL
     Dosage: 250 UG, UNK
  3. FENTANYL. [Suspect]
     Active Substance: FENTANYL
     Indication: SEDATION
     Dosage: UNK, AS NEEDED (50 TO 100 UG WERE GIVEN AS NEEDED)
  4. DEXMEDETOMIDINE HYDROCHLORIDE. [Suspect]
     Active Substance: DEXMEDETOMIDINE HYDROCHLORIDE
     Indication: SEDATION
     Dosage: 0.1 TO 0.2 UG/KG/HR

REACTIONS (3)
  - Respiratory depression [Recovering/Resolving]
  - Sedation complication [Recovering/Resolving]
  - Overdose [Recovering/Resolving]
